FAERS Safety Report 8313699-4 (Version None)
Quarter: 2012Q2

REPORT INFORMATION
  Report Type: 
  Country: None (occurrence: None)
  Receive Date: 20120426
  Receipt Date: 20110808
  Transmission Date: 20120825
  Serious: Yes (Other)
  Sender: FDA-Public Use
  Company Number: US-TEVA-US018170

PATIENT
  Age: 89 Year
  Sex: Male

DRUGS (8)
  1. DIGOXIN [Concomitant]
     Dosage: .2 MILLIGRAM;
     Route: 048
  2. PROVIGIL [Suspect]
     Indication: SLEEP APNOEA SYNDROME
     Dosage: 100 MILLIGRAM;
     Route: 048
     Dates: start: 20050801, end: 20060807
  3. VITAMIN D [Concomitant]
     Route: 048
  4. PRAVACHOL [Concomitant]
     Dosage: 20 MILLIGRAM;
     Route: 048
  5. TOPROL-XL [Concomitant]
     Dosage: 12.5 MILLIGRAM;
     Route: 048
  6. PROVIGIL [Suspect]
     Dosage: 200 MILLIGRAM;
     Route: 048
     Dates: start: 20060808
  7. CARDIZEM [Concomitant]
     Dosage: 180 MILLIGRAM;
     Route: 048
  8. VITAMIN B-12 [Concomitant]
     Route: 065

REACTIONS (1)
  - PSYCHOTIC DISORDER [None]
